FAERS Safety Report 7405981-X (Version None)
Quarter: 2011Q2

REPORT INFORMATION
  Report Type: 
  Country: None (occurrence: None)
  Receive Date: 20110405
  Receipt Date: 20110405
  Transmission Date: 20111010
  Serious: Yes (Other)
  Sender: FDA-Public Use
  Company Number: None

PATIENT
  Age: 66 Year
  Sex: Female
  Weight: 65.7716 kg

DRUGS (2)
  1. FENTANYL-75 [Suspect]
     Indication: BACK PAIN
     Dosage: 75MCG /72 HOURS Q 72 HOURS TOPICALLY
     Route: 061
     Dates: start: 20070810
  2. FENTANYL-75 [Suspect]
     Indication: BACK PAIN
     Dosage: 75MCG /72 HOURS Q 72 HOURS TOPICALLY
     Route: 061
     Dates: start: 20070518

REACTIONS (2)
  - PRODUCT SUBSTITUTION ISSUE [None]
  - DRUG INEFFECTIVE [None]
